FAERS Safety Report 18159402 (Version 1)
Quarter: 2020Q3

REPORT INFORMATION
  Report Type: Other
  Country: CN (occurrence: CN)
  Receive Date: 20200818
  Receipt Date: 20200818
  Transmission Date: 20201103
  Serious: Yes (Other)
  Sender: FDA-Public Use
  Company Number: CN-ROCHE-2655374

PATIENT

DRUGS (5)
  1. CISPLATIN. [Suspect]
     Active Substance: CISPLATIN
     Indication: NON-SMALL CELL LUNG CANCER
     Dosage: INJECTION, 10 MG/VIAL
     Route: 041
  2. KANG AI ZHU SHE YE [Suspect]
     Active Substance: HERBALS
     Indication: NON-SMALL CELL LUNG CANCER
     Dosage: INJECTION, 20 MG/VIAL
     Route: 041
  3. DEXAMETHASONE. [Concomitant]
     Active Substance: DEXAMETHASONE
  4. BEVACIZUMAB. [Suspect]
     Active Substance: BEVACIZUMAB
     Indication: NON-SMALL CELL LUNG CANCER
     Dosage: INJECTION, 4ML; 100MG
     Route: 041
  5. DOCETAXEL. [Suspect]
     Active Substance: DOCETAXEL
     Indication: NON-SMALL CELL LUNG CANCER
     Dosage: INJECTION, 0.5 M: 20 MG
     Route: 041

REACTIONS (3)
  - Renal injury [Unknown]
  - Liver injury [Unknown]
  - Myelosuppression [Unknown]
